FAERS Safety Report 6933646-7 (Version None)
Quarter: 2010Q3

REPORT INFORMATION
  Report Type: 
  Country: None (occurrence: None)
  Receive Date: 20100817
  Receipt Date: 20100805
  Transmission Date: 20110219
  Serious: Yes (Death)
  Sender: FDA-Public Use
  Company Number: 2010P1000553

PATIENT
  Age: 17 Year
  Sex: Female

DRUGS (3)
  1. MALATHION [Suspect]
     Dosage: X1;PO
     Route: 048
  2. CON MEDS [Concomitant]
  3. PREV MEDS [Concomitant]

REACTIONS (20)
  - ACIDOSIS [None]
  - ACUTE PULMONARY OEDEMA [None]
  - CARDIAC ARREST [None]
  - CARDIOGENIC SHOCK [None]
  - CARDIOMEGALY [None]
  - CARDIOTOXICITY [None]
  - COMA [None]
  - DRUG TOXICITY [None]
  - ELECTROLYTE IMBALANCE [None]
  - HYPOXIA [None]
  - MYOCARDIAL INFARCTION [None]
  - NO THERAPEUTIC RESPONSE [None]
  - OLIGURIA [None]
  - PALLOR [None]
  - PERIPHERAL COLDNESS [None]
  - POISONING [None]
  - PSYCHOMOTOR HYPERACTIVITY [None]
  - RALES [None]
  - TACHYPNOEA [None]
  - VENTRICULAR FIBRILLATION [None]
